FAERS Safety Report 11091892 (Version 1)
Quarter: 2015Q2

REPORT INFORMATION
  Report Type: Spontaneous
  Country: PT (occurrence: PT)
  Receive Date: 20150505
  Receipt Date: 20150505
  Transmission Date: 20150821
  Serious: Yes (Hospitalization)
  Sender: FDA-Public Use
  Company Number: PT-MYLANLABS-2015M1014878

PATIENT

DRUGS (2)
  1. CAPECITABINE. [Concomitant]
     Active Substance: CAPECITABINE
     Indication: RECTAL ADENOCARCINOMA
     Dosage: TOTAL 12 CYCLES
     Route: 065
  2. OXALIPLATIN. [Suspect]
     Active Substance: OXALIPLATIN
     Indication: RECTAL ADENOCARCINOMA
     Dosage: TOTAL 12 CYCLES
     Route: 065

REACTIONS (2)
  - Venoocclusive liver disease [Recovered/Resolved]
  - Hepatic neoplasm [Recovered/Resolved]
